FAERS Safety Report 12419298 (Version 2)
Quarter: 2016Q2

REPORT INFORMATION
  Report Type: Spontaneous
  Country: US (occurrence: US)
  Receive Date: 20160531
  Receipt Date: 20160622
  Transmission Date: 20160815
  Serious: Yes (Life-Threatening, Hospitalization, Other)
  Sender: FDA-Public Use
  Company Number: US-ASTRAZENECA-2016SE55951

PATIENT
  Age: 19362 Day
  Sex: Male
  Weight: 67.1 kg

DRUGS (2)
  1. BRILINTA [Suspect]
     Active Substance: TICAGRELOR
     Indication: PERCUTANEOUS CORONARY INTERVENTION
     Route: 048
     Dates: start: 20160507, end: 20160518
  2. BRILINTA [Suspect]
     Active Substance: TICAGRELOR
     Indication: CORONARY ARTERY OCCLUSION
     Route: 048
     Dates: start: 20160507, end: 20160518

REACTIONS (2)
  - Retroperitoneal haemorrhage [Unknown]
  - Vascular stent thrombosis [Recovering/Resolving]

NARRATIVE: CASE EVENT DATE: 20160507
